FAERS Safety Report 14021646 (Version 1)
Quarter: 2017Q3

REPORT INFORMATION
  Report Type: Spontaneous
  Country: US (occurrence: None)
  Receive Date: 20170928
  Receipt Date: 20170928
  Transmission Date: 20171128
  Serious: Yes (Life-Threatening, Hospitalization, Other)
  Sender: FDA-Public Use
  Company Number: None

PATIENT
  Age: 63 Year
  Sex: Female
  Weight: 92.08 kg

DRUGS (11)
  1. LISINOPRIL/HCTZ 20/25 [Suspect]
     Active Substance: HYDROCHLOROTHIAZIDE\LISINOPRIL
     Indication: HYPERTENSION
     Dosage: 20/25 MG (1) 1X A DAY MOUTH
     Route: 048
     Dates: start: 1997, end: 20170903
  2. TEMAPAM [Concomitant]
  3. GABAPENTIN. [Concomitant]
     Active Substance: GABAPENTIN
  4. ALBUTEROL. [Concomitant]
     Active Substance: ALBUTEROL
  5. VITAMIN D [Concomitant]
     Active Substance: CHOLECALCIFEROL
  6. C-PAP [Concomitant]
  7. CITRILAPRAM [Concomitant]
  8. AMOPINE [Concomitant]
     Active Substance: AMLODIPINE BESYLATE
  9. LEVOXIL [Concomitant]
  10. BENADRYL [Concomitant]
     Active Substance: DIPHENHYDRAMINE HYDROCHLORIDE
  11. FIBER [Concomitant]
     Active Substance: PSYLLIUM HUSK

REACTIONS (6)
  - Dyspnoea [None]
  - PO2 abnormal [None]
  - Swollen tongue [None]
  - Angioedema [None]
  - Loss of consciousness [None]
  - Vomiting [None]

NARRATIVE: CASE EVENT DATE: 20170903
